FAERS Safety Report 4681221-X (Version None)
Quarter: 2005Q2

REPORT INFORMATION
  Report Type: 
  Country: None (occurrence: None)
  Receive Date: 20050602
  Receipt Date: 20050602
  Transmission Date: 20051028
  Serious: Yes (Other)
  Sender: FDA-Public Use
  Company Number: None

PATIENT
  Age: 30 Year
  Sex: Female
  Weight: 61.2356 kg

DRUGS (3)
  1. PAXIL CR [Suspect]
     Indication: ANXIETY
     Dosage: ONCE DAY ORAL
     Route: 048
     Dates: start: 20030201, end: 20050601
  2. PAXIL CR [Suspect]
     Indication: DEPRESSION
     Dosage: ONCE DAY ORAL
     Route: 048
     Dates: start: 20030201, end: 20050601
  3. . [Concomitant]

REACTIONS (6)
  - ASTHENIA [None]
  - CHEST DISCOMFORT [None]
  - DYSPNOEA [None]
  - DYSPNOEA EXERTIONAL [None]
  - FEELING ABNORMAL [None]
  - HYPOTENSION [None]
